FAERS Safety Report 16493635 (Version 1)
Quarter: 2019Q2

REPORT INFORMATION
  Report Type: Spontaneous
  Country: LU (occurrence: LU)
  Receive Date: 20190628
  Receipt Date: 20190628
  Transmission Date: 20190711
  Serious: Yes (Other)
  Sender: FDA-Public Use
  Company Number: LU-TEVA-2019-LU-1070699

PATIENT
  Age: 71 Year
  Sex: Male
  Weight: 71 kg

DRUGS (6)
  1. PROPRANOLOL [Suspect]
     Active Substance: PROPRANOLOL HYDROCHLORIDE
     Indication: CARDIAC DISORDER
     Dosage: 1 DOSAGE FORM FOR EVERY 1 DAYS
     Route: 048
     Dates: start: 20120111
  2. PROLOPA [Suspect]
     Active Substance: BENSERAZIDE\LEVODOPA
     Indication: PARKINSON^S DISEASE
     Dosage: 2 DOSAGE FORM
     Route: 048
     Dates: start: 20150310
  3. PROSTA URGENIN [Suspect]
     Active Substance: SERENOA REPENS WHOLE
     Indication: BENIGN PROSTATIC HYPERPLASIA
     Dosage: 1 DOSAGE FORM FOR EVERY 1 DAYS
     Route: 048
     Dates: start: 20120111
  4. MIRAPEXIN [Suspect]
     Active Substance: PRAMIPEXOLE
     Indication: PARKINSON^S DISEASE
     Dosage: 1 DOSAGE FORM FOR EVERY 1 DAYS
     Route: 048
     Dates: start: 20120427
  5. LIPANTHYL [Suspect]
     Active Substance: FENOFIBRATE
     Indication: DYSLIPIDAEMIA
     Dosage: 1 DOSAGE FORM FOR EVERY 1 DAYS
     Route: 048
     Dates: start: 20170529
  6. AZILECT [Suspect]
     Active Substance: RASAGILINE MESYLATE
     Indication: PARKINSON^S DISEASE
     Dosage: 1DOSAGEFORM FOR EVERY 1DAYS
     Route: 048
     Dates: start: 20120907

REACTIONS (1)
  - Breast cyst [Not Recovered/Not Resolved]

NARRATIVE: CASE EVENT DATE: 201808
